FAERS Safety Report 5748870-9 (Version None)
Quarter: 2008Q2

REPORT INFORMATION
  Report Type: 
  Country: None (occurrence: None)
  Receive Date: 20080522
  Receipt Date: 20080509
  Transmission Date: 20081010
  Serious: Yes (Other)
  Sender: FDA-Public Use
  Company Number: TRP_05711_2008

PATIENT
  Sex: Female

DRUGS (2)
  1. RIBASPHERE [Suspect]
     Indication: HEPATITIS C VIRUS
     Dosage: (1200 MG ORAL)
     Route: 048
     Dates: start: 20070615
  2. PEGASYS [Suspect]
     Indication: HEPATITIS C VIRUS
     Dosage: (180 MCG SUBCUTANEOUS)
     Route: 058
     Dates: start: 20070615

REACTIONS (22)
  - ABDOMINAL PAIN UPPER [None]
  - ANAEMIA [None]
  - ASTHMA [None]
  - BACK PAIN [None]
  - BONE PAIN [None]
  - CHILLS [None]
  - DEPRESSION [None]
  - DIARRHOEA [None]
  - DYSSTASIA [None]
  - EPISTAXIS [None]
  - FATIGUE [None]
  - HYPOAESTHESIA [None]
  - INCREASED TENDENCY TO BRUISE [None]
  - INFLUENZA LIKE ILLNESS [None]
  - MEMORY IMPAIRMENT [None]
  - MUSCULAR WEAKNESS [None]
  - PAIN [None]
  - PELVIC PAIN [None]
  - PLATELET COUNT DECREASED [None]
  - UPPER RESPIRATORY TRACT INFECTION [None]
  - VEIN DISORDER [None]
  - WHITE BLOOD CELL COUNT DECREASED [None]
